FAERS Safety Report 6179871-7 (Version None)
Quarter: 2009Q2

REPORT INFORMATION
  Report Type: 
  Country: None (occurrence: None)
  Receive Date: 20090505
  Receipt Date: 20090427
  Transmission Date: 20091009
  Serious: Yes (Hospitalization, Disabling)
  Sender: FDA-Public Use
  Company Number: DE-SP-2009-01115

PATIENT
  Age: 77 Year
  Sex: Male
  Weight: 90 kg

DRUGS (2)
  1. IMMUCYST [Suspect]
     Indication: BLADDER CANCER
     Dosage: NOT REPORTED
     Route: 043
     Dates: start: 20080408, end: 20081013
  2. IMMUCYST [Suspect]
     Dosage: NOT REPORTED
     Route: 043
     Dates: start: 20080408, end: 20081013

REACTIONS (5)
  - BOVINE TUBERCULOSIS [None]
  - CONTRACTED BLADDER [None]
  - CYSTITIS EROSIVE [None]
  - DYSURIA [None]
  - POLLAKIURIA [None]
